FAERS Safety Report 24540043 (Version 1)
Quarter: 2024Q4

REPORT INFORMATION
  Report Type: Spontaneous
  Country: US (occurrence: None)
  Receive Date: 20241023
  Receipt Date: 20241023
  Transmission Date: 20250115
  Serious: Yes (Hospitalization)
  Sender: Public
  Company Number: None

PATIENT
  Sex: Female

DRUGS (4)
  1. DROXIDOPA [Suspect]
     Active Substance: DROXIDOPA
     Indication: Orthostatic hypotension
     Dosage: OTHER FREQUENCY : IN THE MORNING;?TAKE 1 CAPSULE BY  MOUTH IN THE MORNING, 1 CAPSULE AT NOON, AND 1
     Route: 048
     Dates: start: 202307
  2. DROXIDOPA [Suspect]
     Active Substance: DROXIDOPA
     Dosage: OTHER FREQUENCY : AT NOON;?
     Route: 048
  3. DROXIDOPA [Suspect]
     Active Substance: DROXIDOPA
     Dosage: OTHER FREQUENCY : IN THE EVENING;?
     Route: 048
     Dates: start: 202307
  4. JAKAFI [Concomitant]
     Active Substance: RUXOLITINIB

REACTIONS (2)
  - Hypertension [None]
  - Dizziness [None]
